FAERS Safety Report 8424683-4 (Version None)
Quarter: 2012Q2

REPORT INFORMATION
  Report Type: 
  Country: None (occurrence: None)
  Receive Date: 20120611
  Receipt Date: 20120605
  Transmission Date: 20120825
  Serious: Yes (Hospitalization)
  Sender: FDA-Public Use
  Company Number: US-BIOGENIDEC-2007BI014180

PATIENT
  Age: 37 Year
  Sex: Female
  Weight: 88 kg

DRUGS (8)
  1. AVONEX [Suspect]
     Route: 030
     Dates: start: 20071001, end: 20110201
  2. AVONEX [Suspect]
     Indication: MULTIPLE SCLEROSIS
     Route: 030
     Dates: start: 20011101, end: 20030101
  3. AVONEX [Suspect]
     Route: 030
     Dates: start: 20050101, end: 20050101
  4. AVONEX [Suspect]
     Route: 030
     Dates: start: 20030101, end: 20050101
  5. AVONEX [Suspect]
     Route: 030
     Dates: start: 20051101, end: 20071001
  6. AVONEX [Suspect]
     Route: 030
     Dates: start: 20050101, end: 20050101
  7. AVONEX [Suspect]
     Route: 030
     Dates: start: 20120321
  8. NAPROXEN (ALEVE) [Concomitant]
     Indication: PREMEDICATION

REACTIONS (23)
  - INCREASED APPETITE [None]
  - PAIN [None]
  - MUSCLE SPASTICITY [None]
  - RASH [None]
  - LOCAL SWELLING [None]
  - PHARYNGITIS STREPTOCOCCAL [None]
  - WEIGHT INCREASED [None]
  - PERONEAL NERVE PALSY [None]
  - DYSPHAGIA [None]
  - SINUSITIS [None]
  - MIGRAINE [None]
  - FALL [None]
  - WRIST FRACTURE [None]
  - CARPAL TUNNEL SYNDROME [None]
  - NAUSEA [None]
  - THYROID CANCER [None]
  - STRESS [None]
  - BALANCE DISORDER [None]
  - PNEUMONIA [None]
  - OROPHARYNGEAL PAIN [None]
  - INFLUENZA LIKE ILLNESS [None]
  - THYROID DISORDER [None]
  - HYPOAESTHESIA [None]
